FAERS Safety Report 5005745-0 (Version None)
Quarter: 2006Q2

REPORT INFORMATION
  Report Type: 
  Country: None (occurrence: None)
  Receive Date: 20060515
  Receipt Date: 20060502
  Transmission Date: 20061013
  Serious: Yes (Hospitalization)
  Sender: FDA-Public Use
  Company Number: HQWYE388317JAN06

PATIENT
  Age: 69 Year
  Sex: Male

DRUGS (6)
  1. CORDAREX (AMIODARONE, INJECTION) [Suspect]
     Indication: ATRIAL FIBRILLATION
     Dosage: INTRAVENOUS
     Route: 042
     Dates: start: 20051201, end: 20051201
  2. CORDAREX (AMIODARONE, TABLET) [Suspect]
     Indication: ATRIAL FIBRILLATION
     Dosage: SEE IMAGE
     Route: 048
     Dates: start: 20051201, end: 20051201
  3. CORDAREX (AMIODARONE, TABLET) [Suspect]
     Indication: ATRIAL FIBRILLATION
     Dosage: SEE IMAGE
     Route: 048
     Dates: start: 20051201, end: 20051201
  4. CORDAREX (AMIODARONE, TABLET) [Suspect]
     Indication: ATRIAL FIBRILLATION
     Dosage: SEE IMAGE
     Route: 048
     Dates: start: 20051231, end: 20051231
  5. CORDAREX (AMIODARONE, TABLET) [Suspect]
     Indication: ATRIAL FIBRILLATION
     Dosage: SEE IMAGE
     Route: 048
     Dates: start: 20060101, end: 20060101
  6. CORDAREX (AMIODARONE, TABLET) [Suspect]
     Indication: ATRIAL FIBRILLATION
     Dosage: SEE IMAGE
     Route: 048
     Dates: start: 20060101

REACTIONS (2)
  - CARDIOACTIVE DRUG LEVEL DECREASED [None]
  - DRUG INEFFECTIVE [None]
